FAERS Safety Report 4909411-9 (Version None)
Quarter: 2006Q1

REPORT INFORMATION
  Report Type: 
  Country: None (occurrence: None)
  Receive Date: 20060210
  Receipt Date: 20060210
  Transmission Date: 20060701
  Serious: Yes (Hospitalization)
  Sender: FDA-Public Use
  Company Number: None

PATIENT
  Age: 56 Year
  Sex: Female
  Weight: 75.2971 kg

DRUGS (12)
  1. BEVACIZUMAB [Suspect]
     Indication: COLON CANCER
     Dosage: 5MG/KG  IV
     Route: 042
     Dates: start: 20051025, end: 20051213
  2. OXALIPLATIN [Suspect]
     Indication: COLON CANCER
     Dosage: 85MG/M2   IV
     Route: 042
     Dates: start: 20051025, end: 20051213
  3. ERLOTINIB [Suspect]
     Dosage: 150MG/M2  ORAL
     Route: 048
     Dates: start: 20051025, end: 20051213
  4. FLUOROURACIL [Suspect]
     Dosage: 5FU  320 MG/M2  IV
     Route: 042
     Dates: start: 20051025, end: 20051213
  5. FLUOROURACIL [Suspect]
     Dosage: 5FU  1920  MG/M2  IV
     Route: 042
     Dates: start: 20051025, end: 20051213
  6. LEVOXYL [Concomitant]
  7. HYDROCHLOROTHIAZIDE [Concomitant]
  8. TOPROL-XL [Concomitant]
  9. POTASSIUM CHLORIDE [Concomitant]
  10. LESSCIK [Concomitant]
  11. VICODIN [Concomitant]
  12. ZANTAC [Concomitant]

REACTIONS (6)
  - DIARRHOEA [None]
  - MALAISE [None]
  - NEUTROPENIA [None]
  - ORAL INTAKE REDUCED [None]
  - PYREXIA [None]
  - VOMITING [None]
